FAERS Safety Report 7599804-6 (Version None)
Quarter: 2011Q2

REPORT INFORMATION
  Report Type: 
  Country: None (occurrence: None)
  Receive Date: 20110620
  Receipt Date: 20110518
  Transmission Date: 20111010
  Serious: Yes (Hospitalization)
  Sender: FDA-Public Use
  Company Number: UTC-007264

PATIENT
  Age: 65 Year
  Sex: Male

DRUGS (3)
  1. COUMADIN [Concomitant]
  2. DIURETICS [Concomitant]
  3. TYVASO [Suspect]
     Indication: PULMONARY ARTERIAL HYPERTENSION
     Dosage: 18-54 MICROGRAMS (3-9 BREATHS), INHALATION
     Route: 055
     Dates: start: 20101227

REACTIONS (1)
  - LUNG NEOPLASM MALIGNANT [None]
